FAERS Safety Report 8839625 (Version 1)
Quarter: 2012Q4

REPORT INFORMATION
  Report Type: 
  Country: US (occurrence: US)
  Receive Date: 20121015
  Receipt Date: 20121015
  Transmission Date: 20130627
  Serious: Yes (Other)
  Sender: FDA-Public Use
  Company Number: US-JNJFOC-20121005406

PATIENT
  Sex: Male
  Weight: 99.34 kg

DRUGS (10)
  1. ELMIRON [Suspect]
     Indication: CYSTITIS INTERSTITIAL
     Route: 048
     Dates: start: 2010
  2. ELMIRON [Suspect]
     Indication: CYSTITIS INTERSTITIAL
     Route: 048
     Dates: start: 2000, end: 2010
  3. TRAMADOL [Suspect]
     Indication: BURNING SENSATION
     Route: 048
     Dates: start: 2000
  4. TRAMADOL [Suspect]
     Indication: POLLAKIURIA
     Route: 048
     Dates: start: 2000
  5. TRAMADOL [Suspect]
     Indication: BLADDER PAIN
     Route: 048
     Dates: start: 2000
  6. GABAPENTIN [Suspect]
     Indication: BURNING SENSATION
     Route: 065
     Dates: start: 2000
  7. GABAPENTIN [Suspect]
     Indication: POLLAKIURIA
     Route: 065
     Dates: start: 2000
  8. UNSPECIFIED CARDIAC MEDICINE [Concomitant]
     Indication: CARDIAC DISORDER
     Route: 065
     Dates: start: 2000
  9. ATENOLOL [Concomitant]
     Route: 065
     Dates: start: 2000
  10. UROCIT K [Concomitant]
     Indication: HYPERCHLORHYDRIA
     Route: 065
     Dates: start: 2008

REACTIONS (3)
  - Body height decreased [Recovered/Resolved]
  - Burning sensation [Not Recovered/Not Resolved]
  - Pollakiuria [Not Recovered/Not Resolved]
